FAERS Safety Report 9069365 (Version 1)
Quarter: 2013Q1

REPORT INFORMATION
  Report Type: Spontaneous
  Country: US (occurrence: US)
  Receive Date: 20130215
  Receipt Date: 20130215
  Transmission Date: 20140127
  Serious: Yes (Death)
  Sender: FDA-Public Use
  Company Number: US-BANPHARM-20130830

PATIENT
  Age: 55 Year
  Sex: Male

DRUGS (6)
  1. DIPHENHYDRAMINE UNKNOWN PRODUCT [Suspect]
     Route: 048
  2. ALPRAZOLAM [Suspect]
     Route: 048
  3. METHADONE [Suspect]
     Route: 048
  4. OXYCODONE [Suspect]
     Route: 048
  5. OLANZAPINE [Suspect]
     Route: 048
  6. ANTICONVULSANT (PYRROLIDINONE) [Suspect]
     Route: 048

REACTIONS (1)
  - Cardio-respiratory arrest [Fatal]
